FAERS Safety Report 10029361 (Version 1)
Quarter: 2014Q1

REPORT INFORMATION
  Report Type: Report from Study
  Country: AR (occurrence: AR)
  Receive Date: 20140322
  Receipt Date: 20140322
  Transmission Date: 20141002
  Serious: Yes (Other)
  Sender: FDA-Public Use
  Company Number: PHHY2014AR033441

PATIENT
  Sex: Male

DRUGS (1)
  1. DIOVAN [Suspect]
     Indication: HYPERTENSION
     Dosage: 160 MG, DAILY (FRACTIONATED MEDICATION)
     Dates: start: 201401

REACTIONS (2)
  - Cerebrovascular accident [Unknown]
  - Wrong technique in drug usage process [Unknown]
